FAERS Safety Report 19600422 (Version 1)
Quarter: 2021Q3

REPORT INFORMATION
  Report Type: Report from Study
  Country: US (occurrence: US)
  Receive Date: 20210722
  Receipt Date: 20210722
  Transmission Date: 20211014
  Serious: No
  Sender: FDA-Public Use
  Company Number: US-SUNOVION-2021SUN002421

PATIENT

DRUGS (1)
  1. KYNMOBI [Suspect]
     Active Substance: APOMORPHINE HYDROCHLORIDE
     Dosage: 10 MG
     Route: 060
     Dates: start: 20210617

REACTIONS (3)
  - Headache [Unknown]
  - Neck pain [Unknown]
  - Nausea [Unknown]

NARRATIVE: CASE EVENT DATE: 20210622
